FAERS Safety Report 16769847 (Version 1)
Quarter: 2019Q3

REPORT INFORMATION
  Report Type: Spontaneous
  Country: GB (occurrence: GB)
  Receive Date: 20190904
  Receipt Date: 20190904
  Transmission Date: 20191005
  Serious: Yes (Other)
  Sender: FDA-Public Use
  Company Number: GB-009507513-1908GBR009970

PATIENT
  Age: 58 Year
  Sex: Male
  Weight: 76 kg

DRUGS (12)
  1. MIRTAZAPINE. [Concomitant]
     Active Substance: MIRTAZAPINE
     Dosage: 1 DOSAGE FORM AT NIGHT (INCREASED FROM 30MG)
     Dates: start: 20180924
  2. BENDROFLUMETHIAZIDE [Concomitant]
     Active Substance: BENDROFLUMETHIAZIDE
     Dosage: 1 DOSAGE FORM (IN THE MORNING)
     Dates: start: 20180924
  3. LISINOPRIL. [Concomitant]
     Active Substance: LISINOPRIL
     Dosage: 1 DOSAGE FORM, PER DAY
     Dates: start: 20180924
  4. AMLODIPINE [Concomitant]
     Active Substance: AMLODIPINE BESYLATE
     Dosage: 1 DOSAGE FORM PER DAY
     Dates: start: 20180924
  5. BETAMETHASONE VALERATE. [Concomitant]
     Active Substance: BETAMETHASONE VALERATE
     Dosage: APPLY 2 DOSAGE FORM PER DAY
     Dates: start: 20190710
  6. ROSUVASTATIN. [Concomitant]
     Active Substance: ROSUVASTATIN
     Indication: HYPERCHOLESTEROLAEMIA
     Dosage: TAKE ONE DAILY
     Dates: start: 20190626
  7. ALBUTEROL. [Concomitant]
     Active Substance: ALBUTEROL
     Dosage: 2 DOSAGE FORM (AS NECESSARY)
     Route: 055
     Dates: start: 20190522, end: 20190619
  8. OTOMIZE (ACETIC ACID (+) DEXAMETHASONE (+) NEOMYCIN SULFATE) [Concomitant]
     Dosage: 1 DOSAGE FORM PER DAY, PUFF INTO THE AFFECTED EAR (S), THREE
     Route: 001
     Dates: start: 20190715, end: 20190722
  9. METFORMIN [Concomitant]
     Active Substance: METFORMIN HYDROCHLORIDE
     Dosage: 1 DOSAGE FORM (WITH BREAKFAST FOR ONE WEEK)
     Dates: start: 20180924
  10. EZETIMIBE. [Suspect]
     Active Substance: EZETIMIBE
     Dosage: 10 MILLIGRAM  PER DAY
     Dates: start: 20190522, end: 20190619
  11. ARIPIPRAZOLE. [Concomitant]
     Active Substance: ARIPIPRAZOLE
     Dosage: 1 DOSAGE FORM  PER DAY (INCREASE AS PER LETTER 21.7.15)
     Dates: start: 20180924
  12. AMOXICILLIN. [Concomitant]
     Active Substance: AMOXICILLIN
     Dosage: 3 DOSAGE FORM, QD
     Dates: start: 20190710, end: 20190715

REACTIONS (2)
  - Chest discomfort [Recovered/Resolved]
  - Dyspnoea [Recovered/Resolved]

NARRATIVE: CASE EVENT DATE: 20190802
